FAERS Safety Report 9775619 (Version 1)
Quarter: 2013Q4

REPORT INFORMATION
  Report Type: Spontaneous
  Country: US (occurrence: US)
  Receive Date: 20131220
  Receipt Date: 20131220
  Transmission Date: 20140711
  Serious: Yes (Hospitalization, Other)
  Sender: FDA-Public Use
  Company Number: US-BAYER-2013-154531

PATIENT
  Age: 23 Year
  Sex: Female
  Weight: 95.69 kg

DRUGS (5)
  1. YAZ [Suspect]
     Route: 048
  2. PSEUDOEPHEDRINE [Concomitant]
  3. TAMIFLU [Concomitant]
  4. LODRANE [Concomitant]
  5. HYDROCODONE [Concomitant]

REACTIONS (3)
  - Thrombophlebitis superficial [None]
  - Pulmonary embolism [None]
  - Deep vein thrombosis [None]
